FAERS Safety Report 22017371 (Version 1)
Quarter: 2023Q1

REPORT INFORMATION
  Report Type: Spontaneous
  Country: RU (occurrence: RU)
  Receive Date: 20230221
  Receipt Date: 20230221
  Transmission Date: 20230417
  Serious: Yes (Life-Threatening, Hospitalization, Disabling, Other)
  Sender: FDA-Public Use
  Company Number: RU-GLAXOSMITHKLINE-RUCH2023GSK007118

PATIENT
  Age: 46 Year
  Sex: Male

DRUGS (1)
  1. VOLTAREN [Suspect]
     Active Substance: DICLOFENAC SODIUM
     Indication: Arthralgia
     Dosage: UNK
     Route: 065

REACTIONS (13)
  - Sepsis [Unknown]
  - Necrosis [Unknown]
  - Cellulitis [Unknown]
  - Body temperature increased [Unknown]
  - Peripheral swelling [Unknown]
  - Erythema [Unknown]
  - Contusion [Unknown]
  - Injection site induration [Unknown]
  - Anaemia [Unknown]
  - Pain in extremity [Unknown]
  - Suspected counterfeit product [Unknown]
  - Arthritis [Unknown]
  - Injection site cellulitis [Unknown]
